FAERS Safety Report 9229605 (Version 1)
Quarter: 2013Q2

REPORT INFORMATION
  Report Type: Spontaneous
  Country: MX (occurrence: MX)
  Receive Date: 20130414
  Receipt Date: 20130414
  Transmission Date: 20140414
  Serious: Yes (Hospitalization, Disabling, Other)
  Sender: FDA-Public Use
  Company Number: PHHY2013MX035296

PATIENT
  Age: 75 Year
  Sex: Female

DRUGS (7)
  1. EXELON PATCH [Suspect]
     Indication: DEMENTIA ALZHEIMER^S TYPE
     Dosage: 4.6 MG, DAILY
     Route: 062
  2. PLAVIX [Concomitant]
     Dosage: 0.5 UKN, DAILY
  3. MICARDIS [Concomitant]
     Dosage: 0.5 UKN, DAILY
  4. EBIXA [Concomitant]
     Indication: MEMORY IMPAIRMENT
     Dosage: 1 UKN, DAILY
     Dates: start: 201301
  5. LEXAPRO [Concomitant]
     Dosage: UNK UKN, UNK
     Dates: start: 201211
  6. FORTEO [Concomitant]
     Indication: OSTEOPOROSIS
     Dosage: 1 UKN, DAILY
     Dates: start: 201301
  7. CALTRATE [Concomitant]
     Indication: OSTEOPOROSIS
     Dosage: 1 UKN, DAILY

REACTIONS (6)
  - Fall [Unknown]
  - Hip fracture [Unknown]
  - Dementia Alzheimer^s type [Unknown]
  - Amnesia [Not Recovered/Not Resolved]
  - Pneumonia pneumococcal [Recovered/Resolved]
  - Fear of falling [Not Recovered/Not Resolved]
